FAERS Safety Report 8499992-3 (Version None)
Quarter: 2012Q2

REPORT INFORMATION
  Report Type: 
  Country: None (occurrence: None)
  Receive Date: 20120629
  Receipt Date: 20120618
  Transmission Date: 20120825
  Serious: Yes (Hospitalization)
  Sender: FDA-Public Use
  Company Number: 2012P1042284

PATIENT
  Age: 22 Year
  Sex: Female
  Weight: 86 kg

DRUGS (7)
  1. ZANTAC [Concomitant]
  2. AMBIEN [Concomitant]
  3. FEXOFENADINE [Concomitant]
  4. DIPHENHYDRAMINE HCL [Suspect]
     Dosage: 25 MG;Q6H;IV
     Route: 042
     Dates: start: 20120610, end: 20120612
  5. PEPCID [Suspect]
     Dosage: 20 MG; IV
     Route: 042
     Dates: end: 20120612
  6. PREDNISONE [Concomitant]
  7. SOLU-MEDROL [Suspect]
     Dates: end: 20120612

REACTIONS (2)
  - BLOOD GLUCOSE INCREASED [None]
  - DRUG HYPERSENSITIVITY [None]
